FAERS Safety Report 7959863-5 (Version None)
Quarter: 2011Q4

REPORT INFORMATION
  Report Type: 
  Country: None (occurrence: None)
  Receive Date: 20111206
  Receipt Date: 20111130
  Transmission Date: 20120403
  Serious: Yes (Other)
  Sender: FDA-Public Use
  Company Number: GB-TEVA-310074ISR

PATIENT
  Sex: Female
  Weight: 72.575 kg

DRUGS (2)
  1. ACETAMINOPHEN [Concomitant]
     Indication: BACK PAIN
     Route: 048
  2. PROPRANOLOL [Suspect]
     Indication: EXTRASYSTOLES
     Dosage: 80 MILLIGRAM;
     Route: 048
     Dates: start: 20111112, end: 20111115

REACTIONS (4)
  - ANXIETY [None]
  - NERVOUSNESS [None]
  - EXTRASYSTOLES [None]
  - BLOOD PRESSURE INCREASED [None]
